FAERS Safety Report 21568320 (Version 1)
Quarter: 2022Q4

REPORT INFORMATION
  Report Type: Spontaneous
  Country: JP (occurrence: JP)
  Receive Date: 20221108
  Receipt Date: 20221108
  Transmission Date: 20230113
  Serious: Yes (Other)
  Sender: FDA-Public Use
  Company Number: JP-GUERBETG_JAPAN-JP-20220180

PATIENT
  Age: 8 Decade
  Sex: Female

DRUGS (2)
  1. LIPIODOL [Suspect]
     Active Substance: ETHIODIZED OIL
     Indication: Therapeutic embolisation
     Dosage: 0.1 ML OF A 1:2 RATIO OF NBCA AND LIPIODOL SUSPENSION
     Route: 013
  2. ENBUCRILATE [Suspect]
     Active Substance: ENBUCRILATE
     Indication: Therapeutic embolisation
     Dosage: 0.1 ML OF A 1:2 RATIO OF NBCA AND LIPIODOL SUSPENSION
     Route: 013

REACTIONS (4)
  - Inflammation [Unknown]
  - Ulcer [Unknown]
  - Embolism arterial [Unknown]
  - Product use in unapproved indication [Unknown]
